FAERS Safety Report 7708409-5 (Version None)
Quarter: 2011Q3

REPORT INFORMATION
  Report Type: 
  Country: None (occurrence: None)
  Receive Date: 20110825
  Receipt Date: 20110816
  Transmission Date: 20111222
  Serious: Yes (Hospitalization, Other)
  Sender: FDA-Public Use
  Company Number: CA-ELI_LILLY_AND_COMPANY-CA201108004957

PATIENT
  Sex: Male

DRUGS (9)
  1. ZYPREXA [Suspect]
     Dosage: 10 MG, UNK
  2. ZYPREXA [Suspect]
     Dosage: 20 MG, EACH EVENING
  3. RISPERDAL [Concomitant]
  4. PAXIL [Concomitant]
  5. HALOPERIDOL [Concomitant]
  6. ZYPREXA [Suspect]
     Indication: SCHIZOPHRENIA
     Dosage: 5 MG, UNK
     Dates: start: 19990831
  7. NORTRIPTYLINE HCL [Concomitant]
  8. LISINOPRIL [Concomitant]
  9. BENZTROPINE MESYLATE [Concomitant]

REACTIONS (3)
  - MYOCARDIAL INFARCTION [None]
  - DIABETES MELLITUS [None]
  - MICROALBUMINURIA [None]
